FAERS Safety Report 19976386 (Version 2)
Quarter: 2021Q4

REPORT INFORMATION
  Report Type: Report from Study
  Country: JP (occurrence: JP)
  Receive Date: 20211021
  Receipt Date: 20211129
  Transmission Date: 20220303
  Serious: Yes (Other)
  Sender: FDA-Public Use
  Company Number: JP-SA-2021SA342839

PATIENT
  Age: 72 Year

DRUGS (4)
  1. VANDETANIB [Suspect]
     Active Substance: VANDETANIB
     Indication: Product used for unknown indication
     Dosage: DAILY DOSAGE: 300 MG
     Route: 048
     Dates: start: 20210304, end: 20210316
  2. VANDETANIB [Suspect]
     Active Substance: VANDETANIB
     Dosage: DAILY DOSAGE: 200 MG
     Route: 048
     Dates: start: 20210414, end: 20210706
  3. VANDETANIB [Suspect]
     Active Substance: VANDETANIB
     Dosage: 300 MG
     Route: 048
     Dates: start: 20200904
  4. AMLODIPINE BESYLATE [Concomitant]
     Active Substance: AMLODIPINE BESYLATE
     Indication: Hypertension
     Dosage: DAILY DOSAGE: 5 MG
     Route: 048

REACTIONS (2)
  - Renal impairment [Recovering/Resolving]
  - Proteinuria [Recovering/Resolving]

NARRATIVE: CASE EVENT DATE: 20210317
